FAERS Safety Report 5148512-X (Version None)
Quarter: 2006Q4

REPORT INFORMATION
  Report Type: 
  Country: None (occurrence: None)
  Receive Date: 20060918
  Receipt Date: 20060503
  Transmission Date: 20070319
  Serious: Yes (Other)
  Sender: FDA-Public Use
  Company Number: US-JANJFOC-20060501344

PATIENT
  Age: 42 Year
  Sex: Female

DRUGS (8)
  1. TOPAMAX [Suspect]
     Indication: MIGRAINE PROPHYLAXIS
     Dosage: 25 MG , 1 IN 1 DAY, ORAL
     Route: 048
     Dates: start: 20060203, end: 20060211
  2. PLAQUENIL [Concomitant]
  3. WELLBUTRIN XL [Concomitant]
  4. PLAQUENIL [Concomitant]
  5. WELLBUTRIN XL [Concomitant]
  6. NASACORT [Concomitant]
  7. SOMA [Concomitant]
  8. DYAZIDE [Concomitant]

REACTIONS (1)
  - ANGLE CLOSURE GLAUCOMA [None]
